FAERS Safety Report 5674710-2 (Version None)
Quarter: 2008Q1

REPORT INFORMATION
  Report Type: 
  Country: None (occurrence: None)
  Receive Date: 20080320
  Receipt Date: 20080313
  Transmission Date: 20080703
  Serious: Yes (Other)
  Sender: FDA-Public Use
  Company Number: B0513328A

PATIENT
  Age: 47 Year
  Sex: Female

DRUGS (3)
  1. ZYBAN [Suspect]
     Dosage: 150MG PER DAY
     Route: 048
     Dates: start: 20071226, end: 20080304
  2. CITALOPRAM HYDROBROMIDE [Concomitant]
     Route: 048
     Dates: start: 20080205
  3. SERETIDE DISKUS [Concomitant]
     Indication: CHRONIC OBSTRUCTIVE PULMONARY DISEASE
     Dates: start: 20070101

REACTIONS (2)
  - INDIFFERENCE [None]
  - SUICIDAL IDEATION [None]
